FAERS Safety Report 7250430-8 (Version None)
Quarter: 2011Q1

REPORT INFORMATION
  Report Type: 
  Country: None (occurrence: None)
  Receive Date: 20110119
  Receipt Date: 20110104
  Transmission Date: 20110831
  Serious: Yes (Other)
  Sender: FDA-Public Use
  Company Number: MSER20110001

PATIENT
  Age: 32 Year
  Sex: Female

DRUGS (3)
  1. ACETAMINOPHEN [Suspect]
     Indication: HEADACHE
     Dosage: DAILY
  2. MORPHINE SUL TAB [Suspect]
     Indication: HEADACHE
     Dosage: DAILY, ORAL
     Route: 048
  3. TRAMADOL HCL [Suspect]
     Indication: HEADACHE
     Dosage: DAILY

REACTIONS (6)
  - DRUG ADMINISTRATION ERROR [None]
  - PERITONITIS [None]
  - MIGRAINE [None]
  - DEVICE MALFUNCTION [None]
  - HEADACHE [None]
  - NAUSEA [None]
